FAERS Safety Report 10689878 (Version 2)
Quarter: 2015Q1

REPORT INFORMATION
  Report Type: Spontaneous
  Country: IT (occurrence: IT)
  Receive Date: 20150105
  Receipt Date: 20150317
  Transmission Date: 20150720
  Serious: Yes (Hospitalization)
  Sender: FDA-Public Use
  Company Number: IT-SA-2014SA179016

PATIENT
  Age: 83 Year
  Sex: Female

DRUGS (8)
  1. CARDURA [Concomitant]
     Active Substance: DOXAZOSIN MESYLATE
     Dosage: STRENGTH: 4 MG
     Route: 048
     Dates: start: 20140408, end: 20140915
  2. FISIOTENS [Concomitant]
     Dosage: STRENGTH: 0.4 MG
     Route: 048
     Dates: start: 20140408, end: 20140915
  3. LANTUS SOLOSTAR [Suspect]
     Active Substance: INSULIN GLARGINE
     Indication: TYPE 2 DIABETES MELLITUS
     Route: 058
     Dates: start: 20140408, end: 20140915
  4. COUMADIN [Concomitant]
     Active Substance: WARFARIN SODIUM
     Dosage: STRENGTH: 5 MG
     Route: 048
     Dates: start: 20140408, end: 20140915
  5. HUMALOG [Suspect]
     Active Substance: INSULIN LISPRO
     Indication: TYPE 2 DIABETES MELLITUS
     Route: 058
     Dates: start: 20140408, end: 20140915
  6. CARDICOR [Concomitant]
     Active Substance: BISOPROLOL
     Dosage: STRENGTH: 2.5 MG
     Route: 048
     Dates: start: 20140408, end: 20140915
  7. INSULIN PEN NOS [Concomitant]
     Active Substance: INSULIN NOS
     Dosage: 03 ML PRE-FILLED (3.5MG / ML), 05 PENS
     Dates: start: 20140408, end: 20140915
  8. SOLOSTAR [Concomitant]
     Active Substance: DEVICE
     Dosage: 03 ML, 05 PENS PRE-FILLED
     Dates: start: 20140408, end: 20140915

REACTIONS (4)
  - Hypokalaemic syndrome [Recovered/Resolved]
  - Overdose [Unknown]
  - Hypoglycaemia [Recovered/Resolved]
  - Confusional state [Recovered/Resolved]

NARRATIVE: CASE EVENT DATE: 20140915
